FAERS Safety Report 13260998 (Version 2)
Quarter: 2017Q1

REPORT INFORMATION
  Report Type: Spontaneous
  Country: US (occurrence: US)
  Receive Date: 20170222
  Receipt Date: 20170228
  Transmission Date: 20170428
  Serious: Yes (Life-Threatening, Hospitalization)
  Sender: FDA-Public Use
  Company Number: US-ELI_LILLY_AND_COMPANY-US201702007876

PATIENT
  Age: 68 Year
  Sex: Male

DRUGS (3)
  1. LARTRUVO [Suspect]
     Active Substance: OLARATUMAB
     Indication: SOFT TISSUE SARCOMA
     Dosage: UNK UNK, UNKNOWN
     Route: 065
     Dates: start: 20170130, end: 20170206
  2. LARTRUVO [Suspect]
     Active Substance: OLARATUMAB
     Dosage: UNK
     Dates: start: 20170206
  3. DOXORUBICIN [Suspect]
     Active Substance: DOXORUBICIN
     Indication: SOFT TISSUE SARCOMA
     Dosage: UNK
     Dates: start: 20170130

REACTIONS (6)
  - Pancytopenia [Recovering/Resolving]
  - Pulmonary embolism [Unknown]
  - Sepsis [Unknown]
  - Intestinal obstruction [Unknown]
  - Respiratory failure [Unknown]
  - Nausea [Recovering/Resolving]

NARRATIVE: CASE EVENT DATE: 20170207
